FAERS Safety Report 5591329-2 (Version None)
Quarter: 2008Q1

REPORT INFORMATION
  Report Type: 
  Country: None (occurrence: None)
  Receive Date: 20080110
  Receipt Date: 20080110
  Transmission Date: 20080703
  Serious: No
  Sender: FDA-Public Use
  Company Number: None

PATIENT
  Age: 51 Year
  Sex: Female
  Weight: 63.5036 kg

DRUGS (1)
  1. FOSAMAX [Suspect]
     Indication: OSTEOPOROSIS PROPHYLAXIS
     Dosage: 20 MG WEEKLY PO
     Route: 048
     Dates: start: 20060101, end: 20071231

REACTIONS (3)
  - ARTHRALGIA [None]
  - GOUTY TOPHUS [None]
  - PAIN IN EXTREMITY [None]
